FAERS Safety Report 10186812 (Version 1)
Quarter: 2014Q2

REPORT INFORMATION
  Report Type: Spontaneous
  Country: CN (occurrence: CN)
  Receive Date: 20140521
  Receipt Date: 20140521
  Transmission Date: 20141212
  Serious: Yes (Death, Other)
  Sender: FDA-Public Use
  Company Number: PHHY2014CN058784

PATIENT
  Age: 48 Year
  Sex: Female

DRUGS (4)
  1. BORTEZOMIB [Suspect]
     Indication: PLASMA CELL MYELOMA
  2. BORTEZOMIB [Suspect]
     Indication: PERIPHERAL T-CELL LYMPHOMA UNSPECIFIED
  3. DEXAMETHASONE [Suspect]
     Indication: PLASMA CELL MYELOMA
  4. DEXAMETHASONE [Suspect]
     Indication: PERIPHERAL T-CELL LYMPHOMA UNSPECIFIED

REACTIONS (7)
  - Circulatory collapse [Fatal]
  - Respiratory failure [Fatal]
  - Electrolyte imbalance [Fatal]
  - Anaemia [Fatal]
  - Hypoproteinaemia [Unknown]
  - Diarrhoea [Unknown]
  - Abdominal pain [Unknown]
